FAERS Safety Report 15994103 (Version 4)
Quarter: 2019Q1

REPORT INFORMATION
  Report Type: Report from Study
  Country: US (occurrence: US)
  Receive Date: 20190222
  Receipt Date: 20190326
  Transmission Date: 20190418
  Serious: Yes (Hospitalization)
  Sender: FDA-Public Use
  Company Number: US-GILEAD-2019-0392220

PATIENT
  Age: 65 Year
  Sex: Female
  Weight: 108.57 kg

DRUGS (41)
  1. ENBREL [Concomitant]
     Active Substance: ETANERCEPT
     Indication: PSORIASIS
  2. PRAVASTATIN. [Concomitant]
     Active Substance: PRAVASTATIN
     Indication: HYPERLIPIDAEMIA
     Dosage: 80 MG, QD
     Route: 048
     Dates: start: 20181218
  3. PANTOPRAZOLE [Concomitant]
     Active Substance: PANTOPRAZOLE
  4. POTASSIUM [Concomitant]
     Active Substance: POTASSIUM
  5. ALEVE [Concomitant]
     Active Substance: NAPROXEN SODIUM
  6. HYDROCODONE/ACETAMINOPHEN [Suspect]
     Active Substance: ACETAMINOPHEN\HYDROCODONE
     Indication: PAIN
     Dosage: HYDROCODONE 7.5MG, ACETAMINOPHEM 325 MG, EVERY 6 HOURS
     Route: 065
     Dates: start: 20140115
  7. ENBREL [Concomitant]
     Active Substance: ETANERCEPT
     Indication: ARTHRITIS
     Dosage: 50 MG/ML (0.98 ML) 1 ML EVERY WEEK
     Route: 058
     Dates: start: 20180517
  8. ESTRADIOL. [Concomitant]
     Active Substance: ESTRADIOL
     Indication: MENOPAUSE
     Dosage: 0.1MG / 24 HR SEMI WEEKLY PATCH, ONE PATCH TWICE DAILY
     Route: 062
     Dates: start: 20180223
  9. IPRATROPIUM/ALBUTEROL [Concomitant]
     Active Substance: ALBUTEROL\IPRATROPIUM
     Indication: BRONCHOSPASM
     Dosage: 0.5MG-2.5MG/2.5ML SOLUTION
     Dates: start: 20150724
  10. LACTULOSE. [Concomitant]
     Active Substance: LACTULOSE
     Indication: CONSTIPATION
     Dosage: 10 G/ 15ML
     Route: 048
     Dates: start: 20190313
  11. MONTELUKAST [Concomitant]
     Active Substance: MONTELUKAST SODIUM
     Indication: ASTHMA
     Dosage: 10 MG, QD
     Route: 048
     Dates: start: 20190206
  12. PREDNISOLONE ACETATE. [Concomitant]
     Active Substance: PREDNISOLONE ACETATE
     Dosage: 1 DROP TO RIGHT EYE DAILY
     Dates: start: 20150115
  13. UPTRAVI [Concomitant]
     Active Substance: SELEXIPAG
     Indication: PULMONARY ARTERIAL HYPERTENSION
     Dosage: 200 MCG, QD
     Route: 048
     Dates: start: 20190208
  14. VENTOLIN HFA [Concomitant]
     Active Substance: ALBUTEROL SULFATE
     Dosage: 90 MCG, 2 PUFFS DAILY
     Dates: start: 20140523
  15. AMBRISENTAN [Suspect]
     Active Substance: AMBRISENTAN
     Indication: PULMONARY ARTERIAL HYPERTENSION
     Dosage: 5 MG, QD
     Route: 065
     Dates: start: 20150108
  16. OMEPRAZOLE. [Concomitant]
     Active Substance: OMEPRAZOLE
     Indication: GASTROOESOPHAGEAL REFLUX DISEASE
     Dosage: 40 MG, QD
     Route: 048
     Dates: start: 20131016
  17. POTASSIUM CHLORIDE. [Concomitant]
     Active Substance: POTASSIUM CHLORIDE
     Indication: HYPERTENSION
     Dosage: 20 MEQ, QD
     Route: 048
     Dates: start: 20141218
  18. SPIRIVA [Concomitant]
     Active Substance: TIOTROPIUM BROMIDE MONOHYDRATE
     Indication: ASTHMA
     Dosage: 18 MCG, 1 PUFF DAILY
     Dates: start: 20180813
  19. LYRICA [Concomitant]
     Active Substance: PREGABALIN
  20. CITALOPRAM [Concomitant]
     Active Substance: CITALOPRAM HYDROBROMIDE
     Indication: DEPRESSION
     Dosage: 20 MG, QD
     Route: 048
     Dates: start: 20131015
  21. FOLIC ACID. [Concomitant]
     Active Substance: FOLIC ACID
     Indication: ANAEMIA
     Dosage: 1 MG, QD
     Route: 048
     Dates: start: 20170817
  22. TORSEMIDE. [Concomitant]
     Active Substance: TORSEMIDE
     Indication: DIURETIC THERAPY
     Dosage: 100 MG, QD TAKE 0.5 TABLETS EVERY DAY
     Route: 048
     Dates: start: 20141219
  23. RANEXA [Concomitant]
     Active Substance: RANOLAZINE
  24. LORTAB [Suspect]
     Active Substance: ACETAMINOPHEN\HYDROCODONE BITARTRATE
     Indication: PRODUCT USED FOR UNKNOWN INDICATION
     Route: 065
  25. IPRATROPIUM/ALBUTEROL [Concomitant]
     Active Substance: ALBUTEROL\IPRATROPIUM
     Indication: ASTHMA
  26. DUONEB [Concomitant]
     Active Substance: ALBUTEROL SULFATE\IPRATROPIUM BROMIDE
  27. LOSARTAN. [Concomitant]
     Active Substance: LOSARTAN
  28. TORADOL [Concomitant]
     Active Substance: KETOROLAC TROMETHAMINE
  29. SINGULAIR [Concomitant]
     Active Substance: MONTELUKAST SODIUM
  30. BENZONATATE. [Suspect]
     Active Substance: BENZONATATE
     Indication: COUGH
     Dosage: 100 MG, QD
     Route: 065
     Dates: start: 20181211
  31. NORCO [Suspect]
     Active Substance: ACETAMINOPHEN\HYDROCODONE BITARTRATE
     Indication: PRODUCT USED FOR UNKNOWN INDICATION
     Route: 065
  32. VITAMINS NOS [Concomitant]
     Active Substance: VITAMINS
     Indication: HYPOVITAMINOSIS
     Dosage: ONE TABLET A DAY
     Dates: start: 20181211
  33. POTASSIUM CHLORIDE. [Concomitant]
     Active Substance: POTASSIUM CHLORIDE
     Indication: POLYURIA
  34. SYMBICORT [Concomitant]
     Active Substance: BUDESONIDE\FORMOTEROL FUMARATE DIHYDRATE
     Indication: ASTHMA
     Dosage: 80 MCG-4.5MCG/ 2 PUFFS DAILY
     Dates: start: 20180813
  35. BACLOFEN. [Suspect]
     Active Substance: BACLOFEN
     Indication: MUSCLE SPASMS
     Dosage: 20 MG, TID
     Route: 065
     Dates: start: 20180510
  36. ATIVAN [Suspect]
     Active Substance: LORAZEPAM
     Indication: PRODUCT USED FOR UNKNOWN INDICATION
     Route: 065
  37. RANITIDINE. [Concomitant]
     Active Substance: RANITIDINE
  38. ADCIRCA [Concomitant]
     Active Substance: TADALAFIL
  39. LORAZEPAM. [Suspect]
     Active Substance: LORAZEPAM
     Indication: ANXIETY
     Dosage: 0.5 MG, TID
     Route: 065
     Dates: start: 20131015
  40. VENTOLIN [Concomitant]
     Active Substance: ALBUTEROL SULFATE
  41. ESCITALOPRAM [Concomitant]
     Active Substance: ESCITALOPRAM OXALATE

REACTIONS (5)
  - Fall [Recovered/Resolved]
  - Contusion [Recovered/Resolved]
  - Lung disorder [Unknown]
  - Ammonia increased [Not Recovered/Not Resolved]
  - Asthenia [Recovered/Resolved]

NARRATIVE: CASE EVENT DATE: 20190216
